FAERS Safety Report 9092534 (Version 1)
Quarter: 2013Q1

REPORT INFORMATION
  Report Type: Spontaneous
  Country: US (occurrence: US)
  Receive Date: 20130131
  Receipt Date: 20130131
  Transmission Date: 20140127
  Serious: Yes (Other)
  Sender: FDA-Public Use
  Company Number: US-TEVA-383155USA

PATIENT
  Sex: 0

DRUGS (3)
  1. CLOZAPINE [Suspect]
     Dosage: 100 MG AM AND 400 MG PM
  2. BUSPAR [Concomitant]
     Dosage: 90 MILLIGRAM DAILY;
  3. PAXIL [Concomitant]
     Dosage: 60 MILLIGRAM DAILY;

REACTIONS (1)
  - Toxicity to various agents [Unknown]
